FAERS Safety Report 12211537 (Version 1)
Quarter: 2016Q1

REPORT INFORMATION
  Report Type: Spontaneous
  Country: US (occurrence: US)
  Receive Date: 20160325
  Receipt Date: 20160325
  Transmission Date: 20160526
  Serious: No
  Sender: FDA-Public Use
  Company Number: US-GILEAD-2016-0204292

PATIENT
  Age: 67 Year
  Sex: Male

DRUGS (1)
  1. GENVOYA [Suspect]
     Active Substance: COBICISTAT\ELVITEGRAVIR\EMTRICITABINE\TENOFOVIR ALAFENAMIDE FUMARATE
     Indication: PRODUCT USED FOR UNKNOWN INDICATION
     Route: 065

REACTIONS (7)
  - Respiratory tract infection [Unknown]
  - Somnolence [Unknown]
  - Lacrimation increased [Unknown]
  - Sleep disorder [Unknown]
  - Feeling abnormal [Unknown]
  - Weight increased [Unknown]
  - Bowel movement irregularity [Unknown]
